FAERS Safety Report 6237456-8 (Version None)
Quarter: 2009Q2

REPORT INFORMATION
  Report Type: 
  Country: None (occurrence: None)
  Receive Date: 20090619
  Receipt Date: 20090609
  Transmission Date: 20091009
  Serious: Yes (Hospitalization, Disabling, Other)
  Sender: FDA-Public Use
  Company Number: PHHY2008AU22380

PATIENT
  Sex: Male

DRUGS (15)
  1. CLOZARIL [Suspect]
     Dosage: 150 MG
     Dates: start: 20080914
  2. CLOZARIL [Suspect]
     Dosage: 12.5 MG MANE, 25 MG NOCTE
     Dates: start: 20080922
  3. CLOZARIL [Suspect]
     Dosage: 25 MG MANE, 50 MG NOCTE
     Dates: start: 20080923
  4. CLOZARIL [Suspect]
     Dosage: 50 MG, BID
     Dates: start: 20080924
  5. CLOZARIL [Suspect]
     Dosage: 50 MG MANE, 75 MG NOCTE
     Dates: start: 20080925
  6. CLOZARIL [Suspect]
     Dosage: 50 MG MANE, 100 MG NOCTE
     Dates: start: 20080926, end: 20080929
  7. CLOZARIL [Suspect]
     Dosage: 50 MG, QD
     Dates: start: 20080930
  8. OLANZAPINE [Concomitant]
     Dosage: 20 MG/DAY
     Dates: start: 20080831
  9. OLANZAPINE [Concomitant]
     Dosage: 10 MG, QD
     Route: 048
     Dates: start: 20080922, end: 20080930
  10. LITHIUM CARBONATE [Concomitant]
     Dosage: 1250 MG/DAY
  11. PARACETAMOL [Concomitant]
     Dosage: 1 G, TID
     Dates: start: 20080922, end: 20080930
  12. GABAPENTIN [Concomitant]
     Dosage: 400 MG, TID
     Route: 048
     Dates: start: 20080922, end: 20080930
  13. VENLAFAXINE HCL [Concomitant]
     Dosage: 150 MG, QD
     Route: 048
     Dates: start: 20080922, end: 20080930
  14. CLONIDINE [Concomitant]
     Dosage: 50 UG, TID
     Route: 048
     Dates: start: 20080922, end: 20080930
  15. MS CONTIN [Concomitant]
     Dosage: 40 MG, BID
     Route: 048
     Dates: start: 20080922, end: 20080930

REACTIONS (22)
  - ANAEMIA [None]
  - CATHETER PLACEMENT [None]
  - COLOSTOMY [None]
  - HAEMATOCRIT DECREASED [None]
  - HAEMOGLOBIN DECREASED [None]
  - INFECTION [None]
  - INJURY [None]
  - KLEBSIELLA INFECTION [None]
  - NEUTROPENIA [None]
  - NEUTROPHIL COUNT DECREASED [None]
  - PSYCHOTIC DISORDER [None]
  - PYREXIA [None]
  - RED BLOOD CELL COUNT DECREASED [None]
  - RED BLOOD CELL SEDIMENTATION RATE INCREASED [None]
  - RED CELL DISTRIBUTION WIDTH INCREASED [None]
  - SOFT TISSUE INJURY [None]
  - SUICIDE ATTEMPT [None]
  - SURGERY [None]
  - URINARY TRACT INFECTION [None]
  - WHITE BLOOD CELL COUNT DECREASED [None]
  - WOUND INFECTION [None]
  - WOUND INFECTION STAPHYLOCOCCAL [None]
